FAERS Safety Report 19629306 (Version 1)
Quarter: 2021Q3

REPORT INFORMATION
  Report Type: Report from Study
  Country: CA (occurrence: CA)
  Receive Date: 20210728
  Receipt Date: 20210728
  Transmission Date: 20211014
  Serious: Yes (Hospitalization)
  Sender: FDA-Public Use
  Company Number: CA-PFIZER INC-2021894332

PATIENT
  Age: 49 Year
  Sex: Male

DRUGS (10)
  1. PREDNISONE. [Concomitant]
     Active Substance: PREDNISONE
     Dosage: 1 DF, 1 EVERY 1 DAYS
     Route: 065
  2. ETANERCEPT [Suspect]
     Active Substance: ETANERCEPT
     Indication: RHEUMATOID ARTHRITIS
     Dosage: 50 MG, WEEKLY
     Route: 058
  3. SULFASALAZINE. [Concomitant]
     Active Substance: SULFASALAZINE
     Dosage: 1 G, 2X/DAY
     Route: 065
  4. METHOTREXATE SODIUM. [Suspect]
     Active Substance: METHOTREXATE SODIUM
     Dosage: 4 MG, WEEKLY
     Route: 065
  5. INFLIXIMAB [Concomitant]
     Active Substance: INFLIXIMAB
     Dosage: UNK
     Route: 065
  6. METHOTREXATE SODIUM. [Suspect]
     Active Substance: METHOTREXATE SODIUM
     Dosage: 10 MG, WEEKLY
     Route: 048
  7. ETANERCEPT [Suspect]
     Active Substance: ETANERCEPT
     Indication: PSORIATIC ARTHROPATHY
  8. ETANERCEPT [Suspect]
     Active Substance: ETANERCEPT
     Indication: RHEUMATOID ARTHRITIS
     Dosage: 50 MG
     Route: 058
  9. ETANERCEPT [Suspect]
     Active Substance: ETANERCEPT
     Indication: PSORIATIC ARTHROPATHY
  10. INFLIXIMAB [Concomitant]
     Active Substance: INFLIXIMAB
     Dosage: 5 MG
     Route: 065

REACTIONS (15)
  - Asthenia [Unknown]
  - General physical health deterioration [Unknown]
  - Dyspnoea [Unknown]
  - Gait disturbance [Unknown]
  - Joint swelling [Unknown]
  - Peripheral swelling [Unknown]
  - Discomfort [Unknown]
  - Musculoskeletal stiffness [Unknown]
  - Burning sensation [Unknown]
  - Fatigue [Unknown]
  - Pain [Unknown]
  - Tenderness [Unknown]
  - Therapeutic product effect incomplete [Unknown]
  - Arthralgia [Unknown]
  - Inappropriate schedule of product administration [Unknown]
